FAERS Safety Report 5023118-1 (Version None)
Quarter: 2006Q2

REPORT INFORMATION
  Report Type: 
  Country: None (occurrence: None)
  Receive Date: 20060428
  Receipt Date: 20060202
  Transmission Date: 20061013
  Serious: No
  Sender: FDA-Public Use
  Company Number: 012110

PATIENT
  Age: 58 Year
  Sex: Male

DRUGS (7)
  1. PRIALT [Suspect]
     Indication: PAIN
     Dosage: SEE IMAGE
     Route: 037
     Dates: start: 20050516, end: 20050615
  2. PRIALT [Suspect]
     Indication: PAIN
     Dosage: SEE IMAGE
     Route: 037
     Dates: start: 20050615, end: 20050815
  3. PRIALT [Suspect]
     Indication: PAIN
     Dosage: SEE IMAGE
     Route: 037
     Dates: start: 20050815, end: 20050914
  4. PRIALT [Suspect]
     Indication: PAIN
     Dosage: SEE IMAGE
     Route: 037
     Dates: start: 20050914, end: 20051012
  5. PRIALT [Suspect]
     Indication: PAIN
     Dosage: SEE IMAGE
     Route: 037
     Dates: start: 20051012
  6. DILAUDID [Concomitant]
  7. CLONIDINE [Concomitant]

REACTIONS (1)
  - MEMORY IMPAIRMENT [None]
